FAERS Safety Report 22178266 (Version 1)
Quarter: 2023Q2

REPORT INFORMATION
  Report Type: Spontaneous
  Country: US (occurrence: US)
  Receive Date: 20230405
  Receipt Date: 20230405
  Transmission Date: 20230722
  Serious: No
  Sender: FDA-Public Use
  Company Number: US-BRISTOL-MYERS SQUIBB COMPANY-2023-048720

PATIENT
  Age: 71 Year
  Sex: Female

DRUGS (1)
  1. SOTYKTU [Suspect]
     Active Substance: DEUCRAVACITINIB
     Indication: Product used for unknown indication
     Dosage: FREQUENCY:  DAILY
     Route: 048

REACTIONS (4)
  - Candida infection [Unknown]
  - Oropharyngeal pain [Unknown]
  - Oral herpes [Unknown]
  - Oral pain [Unknown]

NARRATIVE: CASE EVENT DATE: 20230404
